FAERS Safety Report 18290026 (Version 1)
Quarter: 2020Q3

REPORT INFORMATION
  Report Type: Spontaneous
  Country: TR (occurrence: TR)
  Receive Date: 20200921
  Receipt Date: 20200921
  Transmission Date: 20201103
  Serious: No
  Sender: FDA-Public Use
  Company Number: TR-TOLMAR, INC.-20TR022591

PATIENT
  Age: 75 Year
  Sex: Male

DRUGS (3)
  1. ELIGARD [Suspect]
     Active Substance: LEUPROLIDE ACETATE
     Dosage: 45 MG, Q 6 MONTH
     Route: 065
     Dates: start: 20190220
  2. ELIGARD [Suspect]
     Active Substance: LEUPROLIDE ACETATE
     Indication: PROSTATE CANCER
     Dosage: 45 MG, Q 6 MONTH
     Route: 065
     Dates: start: 20200826
  3. ELIGARD [Suspect]
     Active Substance: LEUPROLIDE ACETATE
     Dosage: 45 MG, Q 6 MONTH
     Route: 065
     Dates: start: 20200220

REACTIONS (3)
  - Device leakage [None]
  - Needle issue [None]
  - Intercepted product preparation error [None]

NARRATIVE: CASE EVENT DATE: 20200826
